FAERS Safety Report 17866045 (Version 1)
Quarter: 2020Q2

REPORT INFORMATION
  Report Type: Spontaneous
  Country: AU (occurrence: AU)
  Receive Date: 20200605
  Receipt Date: 20200605
  Transmission Date: 20200714
  Serious: Yes (Other)
  Sender: FDA-Public Use
  Company Number: AU-009507513-2006AUS000622

PATIENT
  Age: 30 Year
  Sex: Female

DRUGS (4)
  1. HYOSCINE BUTYLBROMIDE INJ SABEX STANDARD [Concomitant]
     Active Substance: BUTYLSCOPOLAMINE BROMIDE
     Dosage: UNK
  2. METOCLOPRAMIDE HYDROCHLORIDE. [Concomitant]
     Active Substance: METOCLOPRAMIDE HYDROCHLORIDE
     Dosage: UNK
  3. ETONOGESTREL IMPLANT- UNKNOWN [Suspect]
     Active Substance: ETONOGESTREL
     Indication: CONTRACEPTION
     Dosage: UNK
     Route: 058
     Dates: start: 20030803
  4. TEGRETOL [Interacting]
     Active Substance: CARBAMAZEPINE
     Dosage: UNK
     Route: 048

REACTIONS (3)
  - Exposure during pregnancy [Recovered/Resolved]
  - Drug interaction [Unknown]
  - Unintended pregnancy [Unknown]

NARRATIVE: CASE EVENT DATE: 20051021
